FAERS Safety Report 6894381-7 (Version None)
Quarter: 2010Q3

REPORT INFORMATION
  Report Type: 
  Country: None (occurrence: None)
  Receive Date: 20100708
  Receipt Date: 20090526
  Transmission Date: 20110219
  Serious: Yes (Other)
  Sender: FDA-Public Use
  Company Number: 2009220223

PATIENT
  Age: 53 Year
  Sex: Female
  Weight: 61.2 kg

DRUGS (1)
  1. CHANTIX [Suspect]
     Indication: SMOKING CESSATION THERAPY
     Dates: start: 20090403, end: 20090501

REACTIONS (3)
  - AMNESIA [None]
  - CONFUSIONAL STATE [None]
  - FEELING ABNORMAL [None]
